FAERS Safety Report 5999715-3 (Version None)
Quarter: 2008Q4

REPORT INFORMATION
  Report Type: 
  Country: None (occurrence: None)
  Receive Date: 20081211
  Receipt Date: 20081211
  Transmission Date: 20090506
  Serious: Yes (Hospitalization)
  Sender: FDA-Public Use
  Company Number: None

PATIENT
  Sex: Female
  Weight: 90.2658 kg

DRUGS (3)
  1. RAMIPRIL [Suspect]
     Indication: BLOOD PRESSURE
     Dosage: 10MG 2X
  2. SERTRALINE [Suspect]
     Indication: DEPRESSION
     Dosage: 50MG 1X
  3. SERTRALINE [Suspect]
     Indication: NERVOUSNESS
     Dosage: 50MG 1X

REACTIONS (26)
  - ABDOMINAL PAIN [None]
  - ALOPECIA [None]
  - CHILLS [None]
  - COUGH [None]
  - DIARRHOEA [None]
  - DRUG INEFFECTIVE [None]
  - DRY MOUTH [None]
  - DRY SKIN [None]
  - DYSPNOEA [None]
  - HAEMORRHAGE [None]
  - HEADACHE [None]
  - HUNGER [None]
  - HYPERHIDROSIS [None]
  - HYPERSOMNIA [None]
  - MALAISE [None]
  - NO THERAPEUTIC RESPONSE [None]
  - PRODUCT QUALITY ISSUE [None]
  - PRURITUS GENERALISED [None]
  - PYREXIA [None]
  - RHINORRHOEA [None]
  - SKIN ULCER [None]
  - SOMNOLENCE [None]
  - TREMOR [None]
  - URTICARIA [None]
  - VISION BLURRED [None]
  - WEIGHT INCREASED [None]
